FAERS Safety Report 23203222 (Version 1)
Quarter: 2023Q4

REPORT INFORMATION
  Report Type: Spontaneous
  Country: US (occurrence: None)
  Receive Date: 20231119
  Receipt Date: 20231119
  Transmission Date: 20240110
  Serious: No
  Sender: FDA-Public Use
  Company Number: None

PATIENT
  Age: 32 Year
  Sex: Female
  Weight: 81 kg

DRUGS (5)
  1. MOUNJARO [Suspect]
     Active Substance: TIRZEPATIDE
     Indication: Diabetes prophylaxis
     Dosage: OTHER QUANTITY : 1 INJECTION(S);?OTHER FREQUENCY : ONCE A WEEK;?
     Route: 058
     Dates: start: 20231116
  2. PROPRANOLOL [Concomitant]
     Active Substance: PROPRANOLOL HYDROCHLORIDE
  3. SUMATRIPTAN [Concomitant]
     Active Substance: SUMATRIPTAN
  4. LAMICTAL [Concomitant]
     Active Substance: LAMOTRIGINE
  5. CYMBALTA [Concomitant]
     Active Substance: DULOXETINE HYDROCHLORIDE

REACTIONS (12)
  - Loss of consciousness [None]
  - Visual impairment [None]
  - Tinnitus [None]
  - Tremor [None]
  - Hyperhidrosis [None]
  - Yawning [None]
  - Nausea [None]
  - Oropharyngeal pain [None]
  - Muscle spasms [None]
  - Odynophagia [None]
  - Sleep disorder [None]
  - Abdominal pain upper [None]

NARRATIVE: CASE EVENT DATE: 20231116
